FAERS Safety Report 8267699-3 (Version None)
Quarter: 2012Q2

REPORT INFORMATION
  Report Type: 
  Country: None (occurrence: None)
  Receive Date: 20120405
  Receipt Date: 20120405
  Transmission Date: 20120825
  Serious: Yes (Hospitalization)
  Sender: FDA-Public Use
  Company Number: None

PATIENT
  Age: 90 Year
  Sex: Male

DRUGS (2)
  1. WARFARIN SODIUM [Suspect]
     Dosage: 5MG HS PO
     Route: 048
     Dates: start: 20090603, end: 20110129
  2. SALSALATE [Suspect]
     Dosage: 500 MG EVERY DAY PO
     Route: 048
     Dates: start: 20090603, end: 20120129

REACTIONS (1)
  - HAEMATURIA [None]
